FAERS Safety Report 17829019 (Version 1)
Quarter: 2020Q2

REPORT INFORMATION
  Report Type: Spontaneous
  Country: US (occurrence: US)
  Receive Date: 20200527
  Receipt Date: 20200527
  Transmission Date: 20200714
  Serious: No
  Sender: FDA-Public Use
  Company Number: US-UCBSA-2019026429

PATIENT
  Age: 50 Year
  Sex: Female

DRUGS (2)
  1. CIMZIA [Suspect]
     Active Substance: CERTOLIZUMAB PEGOL
     Dosage: 400 UNK
     Route: 058
     Dates: start: 20190501
  2. CIMZIA [Suspect]
     Active Substance: CERTOLIZUMAB PEGOL
     Indication: PRODUCT USED FOR UNKNOWN INDICATION
     Dosage: 400 MILLIGRAM, EV 2 WEEKS(QOW)
     Route: 058
     Dates: start: 20190407

REACTIONS (4)
  - Tooth fracture [Unknown]
  - Photosensitivity reaction [Unknown]
  - Oral herpes [Unknown]
  - Influenza [Unknown]

NARRATIVE: CASE EVENT DATE: 2019
